FAERS Safety Report 8226117-1 (Version None)
Quarter: 2012Q1

REPORT INFORMATION
  Report Type: 
  Country: None (occurrence: None)
  Receive Date: 20120319
  Receipt Date: 20120308
  Transmission Date: 20120608
  Serious: Yes (Hospitalization)
  Sender: FDA-Public Use
  Company Number: TCI2011A03735

PATIENT
  Age: 73 Year
  Sex: Male

DRUGS (6)
  1. BASEN OD (VOGLIBOSE) [Concomitant]
  2. LIPITOR [Concomitant]
  3. ACTOS [Suspect]
     Indication: DIABETES MELLITUS
     Dosage: 30 MG (30 MG, 1 IN 1 D), PER ORAL
     Route: 048
     Dates: start: 20090824, end: 20100826
  4. GLACTIV (SITAGLIPTIN PHOSPHATE) [Concomitant]
  5. MICARDIS [Concomitant]
  6. ATELEC (CILNIDIPINE) [Concomitant]

REACTIONS (4)
  - BLADDER CANCER [None]
  - CALCULUS BLADDER [None]
  - URINARY INCONTINENCE [None]
  - POLLAKIURIA [None]
